FAERS Safety Report 8273709-X (Version None)
Quarter: 2012Q2

REPORT INFORMATION
  Report Type: 
  Country: None (occurrence: None)
  Receive Date: 20120411
  Receipt Date: 20120312
  Transmission Date: 20120825
  Serious: No
  Sender: FDA-Public Use
  Company Number: US-TEVA-327935USA

PATIENT
  Sex: Female

DRUGS (4)
  1. NUVIGIL [Suspect]
     Indication: NARCOLEPSY
     Dosage: 250 MILLIGRAM;
     Route: 048
     Dates: start: 20120307
  2. EZETIMIBE [Concomitant]
     Indication: BLOOD CHOLESTEROL
     Dosage: 10 MILLIGRAM;
     Route: 048
  3. DULOXETINE HYDROCHLORIDE [Concomitant]
     Indication: DEPRESSION
     Dosage: 60 MILLIGRAM;
     Route: 048
  4. LEVOTHYROXINE SODIUM [Concomitant]
     Indication: THYROID DISORDER
     Dosage: 70 MICROGRAM;
     Route: 048

REACTIONS (2)
  - OROPHARYNGEAL PAIN [None]
  - PARAESTHESIA ORAL [None]
